FAERS Safety Report 11241069 (Version 1)
Quarter: 2015Q3

REPORT INFORMATION
  Report Type: Spontaneous
  Country: US (occurrence: US)
  Receive Date: 20150706
  Receipt Date: 20150706
  Transmission Date: 20151125
  Serious: Yes (Hospitalization, Other)
  Sender: FDA-Public Use
  Company Number: US-GLAXOSMITHKLINE INC.-US2015093295

PATIENT
  Age: 76 Year
  Sex: Female

DRUGS (4)
  1. ADVAIR DISKUS [Suspect]
     Active Substance: FLUTICASONE PROPIONATE\SALMETEROL XINAFOATE
     Indication: ASTHMA
     Dosage: 1 DF, QD
     Dates: start: 2006
  2. SINGULAIR [Concomitant]
     Active Substance: MONTELUKAST SODIUM
  3. LOSARTAN. [Concomitant]
     Active Substance: LOSARTAN
  4. VENTOLIN [Suspect]
     Active Substance: ALBUTEROL SULFATE
     Indication: ASTHMA
     Dosage: 1 DF, PRN
     Dates: start: 1974

REACTIONS (6)
  - Visual acuity reduced [Not Recovered/Not Resolved]
  - Optic ischaemic neuropathy [Recovered/Resolved with Sequelae]
  - Inappropriate schedule of drug administration [Unknown]
  - Sleep apnoea syndrome [Not Recovered/Not Resolved]
  - Blood cholesterol increased [Not Recovered/Not Resolved]
  - Hypertension [Not Recovered/Not Resolved]

NARRATIVE: CASE EVENT DATE: 20150420
